FAERS Safety Report 21871529 (Version 1)
Quarter: 2023Q1

REPORT INFORMATION
  Report Type: Report from Study
  Country: US (occurrence: US)
  Receive Date: 20230117
  Receipt Date: 20230117
  Transmission Date: 20230418
  Serious: Yes (Other)
  Sender: FDA-Public Use
  Company Number: US-GSKCCFUS-Case-01580199_AE-89294

PATIENT

DRUGS (1)
  1. BELANTAMAB MAFODOTIN [Suspect]
     Active Substance: BELANTAMAB MAFODOTIN
     Indication: Product used for unknown indication
     Dosage: UNK

REACTIONS (8)
  - Punctate keratitis [Unknown]
  - Ocular toxicity [Unknown]
  - Visual acuity reduced [Unknown]
  - Keratopathy [Unknown]
  - Night blindness [Not Recovered/Not Resolved]
  - Dry eye [Not Recovered/Not Resolved]
  - Foreign body sensation in eyes [Not Recovered/Not Resolved]
  - Condition aggravated [Unknown]

NARRATIVE: CASE EVENT DATE: 20221024
